FAERS Safety Report 17818123 (Version 1)
Quarter: 2020Q2

REPORT INFORMATION
  Report Type: Report from Study
  Country: CA (occurrence: CA)
  Receive Date: 20200522
  Receipt Date: 20200522
  Transmission Date: 20200714
  Serious: Yes (Other)
  Sender: FDA-Public Use
  Company Number: CA-TEVA-2020-CA-1232194

PATIENT
  Age: 60 Year
  Sex: Male

DRUGS (9)
  1. VIAGRA [Concomitant]
     Active Substance: SILDENAFIL CITRATE
     Dosage: 1/2-1 ONCE A DAY , PRN (AS NECESSARY)
     Route: 048
  2. BUPROPION XL [Concomitant]
     Active Substance: BUPROPION
     Dosage: 300 MILLIGRAM DAILY;
     Route: 048
  3. DILTIAZEM XC [Concomitant]
     Dosage: 120 MILLIGRAM DAILY;
     Route: 048
  4. COPAXONE [Suspect]
     Active Substance: GLATIRAMER ACETATE
     Indication: MULTIPLE SCLEROSIS
     Dosage: 20 MILLIGRAM DAILY;
     Dates: start: 20010418
  5. CANDESARTAN. [Concomitant]
     Active Substance: CANDESARTAN
     Dosage: 32 MILLIGRAM DAILY;
     Route: 048
  6. ZOPICLONE [Concomitant]
     Active Substance: ZOPICLONE
     Dosage: 7.5 MILLIGRAM DAILY;
     Route: 048
  7. VENLAFAXINE XR [Concomitant]
     Active Substance: VENLAFAXINE HYDROCHLORIDE
     Dosage: 225 MILLIGRAM DAILY;
     Route: 048
  8. COPAXONE [Suspect]
     Active Substance: GLATIRAMER ACETATE
     Route: 058
     Dates: start: 2001, end: 202005
  9. ROSUVASTATIN. [Concomitant]
     Active Substance: ROSUVASTATIN
     Dosage: 20 MILLIGRAM DAILY;
     Route: 048

REACTIONS (13)
  - Injection site infection [Recovering/Resolving]
  - Bacteraemia [Unknown]
  - Prostatomegaly [Unknown]
  - Cellulitis [Recovering/Resolving]
  - Induration [Not Recovered/Not Resolved]
  - Staphylococcal infection [Unknown]
  - Blood testosterone increased [Unknown]
  - Injection site erythema [Unknown]
  - Erythema [Not Recovered/Not Resolved]
  - Abscess [Recovering/Resolving]
  - Injury associated with device [Unknown]
  - Fluid retention [Recovering/Resolving]
  - Wound drainage [Unknown]

NARRATIVE: CASE EVENT DATE: 2012
